FAERS Safety Report 14602783 (Version 1)
Quarter: 2018Q1

REPORT INFORMATION
  Report Type: Spontaneous
  Country: US (occurrence: US)
  Receive Date: 20180306
  Receipt Date: 20180306
  Transmission Date: 20180509
  Serious: Yes (Other)
  Sender: FDA-Public Use
  Company Number: US-TESARO, INC-US-2018TSO01028

PATIENT

DRUGS (2)
  1. ZEJULA [Suspect]
     Active Substance: NIRAPARIB
     Indication: PRODUCT USED FOR UNKNOWN INDICATION
     Dosage: 300 MG, QD
     Route: 065
  2. ZEJULA [Suspect]
     Active Substance: NIRAPARIB
     Dosage: 200 MG, QD
     Route: 065

REACTIONS (16)
  - Loss of personal independence in daily activities [Recovering/Resolving]
  - Dehydration [Unknown]
  - Liver function test abnormal [Recovered/Resolved]
  - Unevaluable event [Unknown]
  - Constipation [Unknown]
  - Weight decreased [Unknown]
  - Impaired driving ability [Unknown]
  - Ketosis [Unknown]
  - Influenza [Unknown]
  - Sinus disorder [Recovering/Resolving]
  - Intestinal obstruction [Recovered/Resolved]
  - Cognitive disorder [Recovering/Resolving]
  - Feeling abnormal [Recovering/Resolving]
  - Renal function test abnormal [Recovered/Resolved]
  - Fatigue [Recovering/Resolving]
  - Insomnia [Recovering/Resolving]
